FAERS Safety Report 5696537-8 (Version None)
Quarter: 2008Q2

REPORT INFORMATION
  Report Type: 
  Country: None (occurrence: None)
  Receive Date: 20080404
  Receipt Date: 20080404
  Transmission Date: 20081010
  Serious: No
  Sender: FDA-Public Use
  Company Number: None

PATIENT
  Age: 38 Year
  Sex: Male
  Weight: 68.0396 kg

DRUGS (1)
  1. SINGULAIR [Suspect]
     Indication: HYPERSENSITIVITY
     Dosage: 10 MG DAILY PO
     Route: 048
     Dates: start: 20070301, end: 20080402

REACTIONS (4)
  - AFFECTIVE DISORDER [None]
  - ANGER [None]
  - ANXIETY [None]
  - NEGATIVE THOUGHTS [None]
